FAERS Safety Report 8003933-2 (Version None)
Quarter: 2011Q4

REPORT INFORMATION
  Report Type: 
  Country: None (occurrence: None)
  Receive Date: 20111222
  Receipt Date: 20111215
  Transmission Date: 20120403
  Serious: Yes (Death)
  Sender: FDA-Public Use
  Company Number: US-CELGENEUS-163-21880-11111435

PATIENT
  Sex: Female

DRUGS (5)
  1. REVLIMID [Suspect]
     Indication: MULTIPLE MYELOMA
     Dosage: 10 MILLIGRAM
     Route: 048
     Dates: start: 20110818, end: 20111001
  2. ABILIFY [Concomitant]
     Route: 065
     Dates: end: 20110912
  3. LEXAPRO [Concomitant]
     Route: 065
     Dates: end: 20110422
  4. ACTOS [Concomitant]
     Route: 065
     Dates: end: 20110929
  5. CLONAZEPAM [Concomitant]
     Route: 065
     Dates: end: 20110623

REACTIONS (1)
  - COMPLETED SUICIDE [None]
